FAERS Safety Report 7939713-3 (Version None)
Quarter: 2011Q4

REPORT INFORMATION
  Report Type: 
  Country: None (occurrence: None)
  Receive Date: 20111125
  Receipt Date: 20111117
  Transmission Date: 20120403
  Serious: Yes (Life-Threatening, Hospitalization, Other)
  Sender: FDA-Public Use
  Company Number: PHHY2011DE86650

PATIENT
  Age: 40 Year
  Sex: Male
  Weight: 84 kg

DRUGS (5)
  1. METHADONE HYDROCHLORIDE [Concomitant]
     Indication: DRUG DEPENDENCE
     Dosage: 40 MG, QD
     Route: 048
     Dates: start: 19960101
  2. DIAZEPAM [Concomitant]
     Dosage: 10 MG, BID
     Route: 048
     Dates: start: 20050101
  3. RITALIN LA [Suspect]
     Indication: POLYSUBSTANCE DEPENDENCE
     Dosage: 40 MG, UNK
     Route: 048
     Dates: start: 20080401, end: 20110714
  4. RITALIN LA [Suspect]
     Dosage: UPTO 300 MG, QD
     Route: 042
  5. ABILIFY [Concomitant]
     Dates: start: 20100301

REACTIONS (6)
  - WRONG TECHNIQUE IN DRUG USAGE PROCESS [None]
  - RENAL FAILURE ACUTE [None]
  - BLOOD UREA INCREASED [None]
  - BLOOD CREATININE INCREASED [None]
  - GLOMERULAR FILTRATION RATE DECREASED [None]
  - OVERDOSE [None]
